FAERS Safety Report 12168327 (Version 1)
Quarter: 2016Q1

REPORT INFORMATION
  Report Type: Spontaneous
  Country: US (occurrence: None)
  Receive Date: 20160309
  Receipt Date: 20160309
  Transmission Date: 20160526
  Serious: Yes (Hospitalization)
  Sender: FDA-Public Use
  Company Number: None

PATIENT
  Age: 69 Year
  Sex: Female
  Weight: 93.44 kg

DRUGS (36)
  1. METHOCARBAMOL 500 MG [Suspect]
     Active Substance: METHOCARBAMOL
     Indication: MUSCLE SPASMS
     Route: 048
  2. BACLOFEN. [Concomitant]
     Active Substance: BACLOFEN
  3. GLIMEPIRIDE. [Concomitant]
     Active Substance: GLIMEPIRIDE
  4. HYDROCHLOROTHIAZIDE. [Concomitant]
     Active Substance: HYDROCHLOROTHIAZIDE
  5. MONTELUKAST SODIUM. [Concomitant]
     Active Substance: MONTELUKAST SODIUM
  6. HYDRALAZINE [Concomitant]
     Active Substance: HYDRALAZINE HYDROCHLORIDE
  7. LORATADINE. [Concomitant]
     Active Substance: LORATADINE
  8. ACETAMINOPHEN. [Concomitant]
     Active Substance: ACETAMINOPHEN
  9. ONDANSETRON [Concomitant]
     Active Substance: ONDANSETRON
  10. AMLODIPINE BESYLATE. [Concomitant]
     Active Substance: AMLODIPINE BESYLATE
  11. METHOCARBAMOL. [Concomitant]
     Active Substance: METHOCARBAMOL
  12. OXYCODONE [Concomitant]
     Active Substance: OXYCODONE
  13. ALBUTEROL/IPRATROPIUM [Concomitant]
     Active Substance: ALBUTEROL\IPRATROPIUM
  14. ALBUTEROL SULFATE. [Concomitant]
     Active Substance: ALBUTEROL SULFATE
  15. INSULIN DETEMIR [Concomitant]
     Active Substance: INSULIN DETEMIR
  16. FENOFIBRATE. [Concomitant]
     Active Substance: FENOFIBRATE
  17. INSULIN HUMAN LISPRO [Concomitant]
  18. DULOXETINE HCL [Concomitant]
     Active Substance: DULOXETINE HYDROCHLORIDE
  19. ATORVASTATIN CALCIUM. [Concomitant]
     Active Substance: ATORVASTATIN CALCIUM
  20. DOCUSATE SODIUM. [Concomitant]
     Active Substance: DOCUSATE SODIUM
  21. LABETALOL [Concomitant]
     Active Substance: LABETALOL\LABETALOL HYDROCHLORIDE
  22. FLUTICASONE/SALMETEROL [Concomitant]
     Active Substance: FLUTICASONE PROPIONATE\SALMETEROL XINAFOATE
  23. POTASSIUM CHLORIDE/SODIUM CHLORIDE [Concomitant]
  24. PSYLLILUM HYDROPHILIC MUCILLOID [Concomitant]
  25. CARVEDILOL. [Concomitant]
     Active Substance: CARVEDILOL
  26. DEXTROSE/WATER [Concomitant]
  27. GABAPENTIN. [Concomitant]
     Active Substance: GABAPENTIN
  28. MORPHINE SULFATE. [Concomitant]
     Active Substance: MORPHINE SULFATE
  29. SITAGLIPTIN PHOSPHATE [Concomitant]
     Active Substance: SITAGLIPTIN PHOSPHATE
  30. SODIUM CHLORIDE. [Concomitant]
     Active Substance: SODIUM CHLORIDE
  31. DIAZEPAM. [Concomitant]
     Active Substance: DIAZEPAM
  32. MAGNESIUM HYDROXIDE. [Concomitant]
     Active Substance: MAGNESIUM HYDROXIDE
  33. ALBUTEROL SULFATE. [Concomitant]
     Active Substance: ALBUTEROL SULFATE
  34. INSULIN DETEMIR [Concomitant]
     Active Substance: INSULIN DETEMIR
  35. MISCELLANEOUS MEDICATION [Concomitant]
  36. DIAZEPAM. [Concomitant]
     Active Substance: DIAZEPAM

REACTIONS (2)
  - Confusional state [None]
  - Hallucination [None]

NARRATIVE: CASE EVENT DATE: 20160307
